FAERS Safety Report 11232892 (Version 4)
Quarter: 2015Q3

REPORT INFORMATION
  Report Type: Report from Study
  Country: DE (occurrence: DE)
  Receive Date: 20150701
  Receipt Date: 20150721
  Transmission Date: 20151125
  Serious: Yes (Hospitalization)
  Sender: FDA-Public Use
  Company Number: DE-TAKEDA-2015MPI004374

PATIENT

DRUGS (6)
  1. BUSCOPAN [Concomitant]
     Active Substance: BUTYLSCOPOLAMINE BROMIDE
     Dosage: UNK
     Route: 065
     Dates: start: 20150619
  2. LYRICA [Concomitant]
     Active Substance: PREGABALIN
     Dosage: UNK
     Route: 065
     Dates: start: 201410, end: 201506
  3. HYDROMORPHONE [Concomitant]
     Active Substance: HYDROMORPHONE
     Dosage: UNK
     Route: 065
     Dates: start: 20150618
  4. VELCADE [Suspect]
     Active Substance: BORTEZOMIB
     Indication: PLASMA CELL MYELOMA
     Dosage: 2.4 MG, UNK
     Route: 058
     Dates: start: 20150427, end: 20150629
  5. BENDAMUSTINE [Suspect]
     Active Substance: BENDAMUSTINE
     Indication: PLASMA CELL MYELOMA
     Dosage: 170 MG, UNK
     Route: 042
     Dates: start: 20150427, end: 20150609
  6. PREDNISONE. [Suspect]
     Active Substance: PREDNISONE
     Indication: PRODUCT USED FOR UNKNOWN INDICATION
     Dosage: 100 MG, UNK
     Route: 048
     Dates: start: 20150427, end: 20150611

REACTIONS (2)
  - Colitis [Recovered/Resolved]
  - Abdominal pain [Not Recovered/Not Resolved]

NARRATIVE: CASE EVENT DATE: 20150619
